FAERS Safety Report 6372876-2 (Version None)
Quarter: 2009Q3

REPORT INFORMATION
  Report Type: 
  Country: None (occurrence: None)
  Receive Date: 20090924
  Receipt Date: 20090618
  Transmission Date: 20100115
  Serious: Yes (Other)
  Sender: FDA-Public Use
  Company Number: US-ASTRAZENECA-2008UW26355

PATIENT
  Age: 584 Month
  Sex: Female
  Weight: 50.3 kg

DRUGS (8)
  1. SEROQUEL [Suspect]
     Indication: SCHIZOAFFECTIVE DISORDER
     Dosage: 100 TO 300 MG
     Route: 048
     Dates: start: 20070901, end: 20081101
  2. SEROQUEL [Suspect]
     Indication: BIPOLAR DISORDER
     Dosage: 100 TO 300 MG
     Route: 048
     Dates: start: 20070901, end: 20081101
  3. HALDOL [Concomitant]
     Dates: start: 20070101
  4. RISPERDAL [Concomitant]
     Dates: start: 20050101, end: 20060101
  5. STELAZINE [Concomitant]
  6. THORAZINE [Concomitant]
  7. TRILAFON [Concomitant]
     Dates: start: 20080101
  8. ZYPREXA [Concomitant]
     Dates: start: 20080101

REACTIONS (2)
  - DIABETES MELLITUS [None]
  - TARDIVE DYSKINESIA [None]
